FAERS Safety Report 10087413 (Version 2)
Quarter: 2014Q2

REPORT INFORMATION
  Report Type: Spontaneous
  Country: US (occurrence: US)
  Receive Date: 20140418
  Receipt Date: 20140418
  Transmission Date: 20141212
  Serious: Yes (Other)
  Sender: FDA-Public Use
  Company Number: US-NAPPMUNDI-USA-2014-0111943

PATIENT
  Sex: Female
  Weight: 68.27 kg

DRUGS (2)
  1. OXYCONTIN (NDA 22-272) [Suspect]
     Indication: INTERVERTEBRAL DISC DEGENERATION
     Dosage: UNKNOWN
  2. OXYCONTIN (NDA 22-272) [Suspect]
     Indication: HIP FRACTURE

REACTIONS (1)
  - Drug dependence [Recovered/Resolved]
